FAERS Safety Report 24174084 (Version 3)
Quarter: 2024Q3

REPORT INFORMATION
  Report Type: Spontaneous
  Country: US (occurrence: US)
  Receive Date: 20240805
  Receipt Date: 20240906
  Transmission Date: 20241017
  Serious: Yes (Other)
  Sender: PFIZER
  Company Number: US-PFIZER INC-202400228953

PATIENT
  Age: 64 Year
  Sex: Female

DRUGS (1)
  1. XELJANZ XR [Suspect]
     Active Substance: TOFACITINIB CITRATE
     Indication: Psoriatic arthropathy
     Dosage: 11 MG, 1X/DAY
     Route: 048

REACTIONS (12)
  - Sjogren^s syndrome [Unknown]
  - COVID-19 [Unknown]
  - Arthralgia [Unknown]
  - Dry mouth [Not Recovered/Not Resolved]
  - Pain in extremity [Unknown]
  - Psoriasis [Unknown]
  - Peripheral swelling [Recovering/Resolving]
  - Musculoskeletal stiffness [Unknown]
  - Sensitivity to weather change [Unknown]
  - Dry skin [Unknown]
  - Pruritus [Unknown]
  - Aphonia [Unknown]
